FAERS Safety Report 6133404-X (Version None)
Quarter: 2009Q1

REPORT INFORMATION
  Report Type: 
  Country: None (occurrence: None)
  Receive Date: 20090326
  Receipt Date: 20090318
  Transmission Date: 20090719
  Serious: Yes (Other)
  Sender: FDA-Public Use
  Company Number: PHEH2009US00809

PATIENT
  Sex: Female
  Weight: 56.689 kg

DRUGS (9)
  1. RECLAST [Suspect]
     Indication: OSTEOPOROSIS
     Dosage: 5 MG, ONCE/SINGLE
     Dates: start: 20080702, end: 20080702
  2. TRUSOPT [Concomitant]
     Indication: GLAUCOMA
     Dosage: UNK, QHS
     Route: 047
  3. XALATAN [Concomitant]
     Indication: GLAUCOMA
     Dosage: UNK, QHS
     Route: 047
  4. PREVACID [Concomitant]
     Indication: GASTROOESOPHAGEAL REFLUX DISEASE
     Dosage: 30 MG, QD
     Route: 048
  5. XANAX [Concomitant]
     Indication: ANXIETY
     Dosage: UNK, UNK
     Route: 048
  6. XANAX [Concomitant]
     Dosage: 0.5 MG BID, PRN
     Dates: start: 20080722
  7. VITAMINS [Concomitant]
  8. MINERALS NOS [Concomitant]
  9. CALCIUM AND ERGOCALCIFEROL [Concomitant]
     Dosage: UNK, TID
     Route: 048

REACTIONS (13)
  - ARTHRALGIA [None]
  - BONE PAIN [None]
  - BRONCHITIS CHRONIC [None]
  - CHILLS [None]
  - COUGH [None]
  - GAIT DISTURBANCE [None]
  - HEADACHE [None]
  - MUSCULOSKELETAL STIFFNESS [None]
  - PAIN [None]
  - PYREXIA [None]
  - RALES [None]
  - RHONCHI [None]
  - TREMOR [None]
